FAERS Safety Report 7786727-2 (Version None)
Quarter: 2011Q3

REPORT INFORMATION
  Report Type: 
  Country: None (occurrence: None)
  Receive Date: 20110929
  Receipt Date: 20110926
  Transmission Date: 20111222
  Serious: Yes (Other)
  Sender: FDA-Public Use
  Company Number: DE-PFIZER INC-2011229304

PATIENT
  Age: 74 Year
  Sex: Female

DRUGS (2)
  1. NEURONTIN [Suspect]
     Dosage: 3600 MG, DAILY
  2. GABAPENTIN [Suspect]

REACTIONS (2)
  - DRUG INEFFECTIVE [None]
  - DRUG DEPENDENCE [None]
